FAERS Safety Report 14392765 (Version 1)
Quarter: 2018Q1

REPORT INFORMATION
  Report Type: Spontaneous
  Country: US (occurrence: US)
  Receive Date: 20180116
  Receipt Date: 20180116
  Transmission Date: 20180509
  Serious: No
  Sender: FDA-Public Use
  Company Number: US-NOVOPROD-566409

PATIENT
  Age: 71 Year
  Sex: Female
  Weight: 112.2 kg

DRUGS (3)
  1. GLIPIZIDE. [Concomitant]
     Active Substance: GLIPIZIDE
     Indication: TYPE 2 DIABETES MELLITUS
  2. TRESIBA [Suspect]
     Active Substance: INSULIN DEGLUDEC
     Indication: TYPE 2 DIABETES MELLITUS
     Dosage: 28 U, QD
     Route: 058
     Dates: start: 201708, end: 2017
  3. TRESIBA [Suspect]
     Active Substance: INSULIN DEGLUDEC
     Dosage: 25 U, QD
     Route: 058
     Dates: start: 2017

REACTIONS (2)
  - Weight increased [Unknown]
  - Breast discomfort [Unknown]

NARRATIVE: CASE EVENT DATE: 201709
